FAERS Safety Report 7781435-6 (Version None)
Quarter: 2011Q3

REPORT INFORMATION
  Report Type: 
  Country: None (occurrence: None)
  Receive Date: 20110927
  Receipt Date: 20110916
  Transmission Date: 20111222
  Serious: Yes (Other)
  Sender: FDA-Public Use
  Company Number: PHHY2011JP82742

PATIENT
  Age: 62 Year

DRUGS (3)
  1. BEVACIZUMAB [Suspect]
     Indication: COLORECTAL CANCER
     Dosage: 5 MG/KG, UNK
     Route: 042
  2. FLUOROURACIL [Suspect]
     Indication: COLORECTAL CANCER
     Route: 042
  3. OPIOIDS [Concomitant]
     Dosage: UNK

REACTIONS (3)
  - DENTAL CARIES [None]
  - STOMATITIS [None]
  - PERIODONTAL DISEASE [None]
